FAERS Safety Report 25038576 (Version 1)
Quarter: 2025Q1

REPORT INFORMATION
  Report Type: Spontaneous
  Country: US (occurrence: US)
  Receive Date: 20250304
  Receipt Date: 20250304
  Transmission Date: 20250409
  Serious: No
  Sender: TAKEDA
  Company Number: US-TAKEDA-2025TUS022578

PATIENT
  Sex: Female

DRUGS (2)
  1. CUVITRU [Suspect]
     Active Substance: HUMAN IMMUNOGLOBULIN G
     Indication: Product used for unknown indication
     Dosage: 8 GRAM, Q2WEEKS
  2. CUVITRU [Suspect]
     Active Substance: HUMAN IMMUNOGLOBULIN G

REACTIONS (3)
  - Palpitations [Unknown]
  - Blood pressure increased [Unknown]
  - Product quality issue [Unknown]
